FAERS Safety Report 24153760 (Version 1)
Quarter: 2024Q3

REPORT INFORMATION
  Report Type: Spontaneous
  Country: US (occurrence: US)
  Receive Date: 20240730
  Receipt Date: 20240730
  Transmission Date: 20241017
  Serious: Yes (Other)
  Sender: BRISTOL MYERS SQUIBB
  Company Number: US-BRISTOL-MYERS SQUIBB COMPANY-2024-119832

PATIENT
  Age: 70 Year
  Sex: Male

DRUGS (1)
  1. ELIQUIS [Suspect]
     Active Substance: APIXABAN
     Indication: Product used for unknown indication
     Route: 048

REACTIONS (8)
  - Chronic obstructive pulmonary disease [Unknown]
  - Pulmonary thrombosis [Unknown]
  - Arthropathy [Unknown]
  - Cataract [Unknown]
  - Visual impairment [Unknown]
  - Musculoskeletal disorder [Unknown]
  - Post procedural infection [Unknown]
  - Blood viscosity increased [Unknown]
